FAERS Safety Report 7703244-6 (Version None)
Quarter: 2011Q3

REPORT INFORMATION
  Report Type: 
  Country: None (occurrence: None)
  Receive Date: 20110823
  Receipt Date: 20110806
  Transmission Date: 20111222
  Serious: No
  Sender: FDA-Public Use
  Company Number: PA-SANOFI-AVENTIS-2011SA051117

PATIENT
  Age: 30 Year
  Sex: Female

DRUGS (1)
  1. ARAVA [Suspect]
     Indication: RHEUMATOID ARTHRITIS
     Route: 048
     Dates: start: 20110301, end: 20110801

REACTIONS (1)
  - MATERNAL EXPOSURE DURING PREGNANCY [None]
